FAERS Safety Report 6884762-X (Version None)
Quarter: 2010Q3

REPORT INFORMATION
  Report Type: 
  Country: None (occurrence: None)
  Receive Date: 20100729
  Receipt Date: 20071016
  Transmission Date: 20110219
  Serious: No
  Sender: FDA-Public Use
  Company Number: US-PFIZER INC-2007067067

PATIENT
  Sex: Female

DRUGS (2)
  1. CELEBREX [Suspect]
     Indication: PAIN IN EXTREMITY
     Route: 048
     Dates: start: 20070810, end: 20070811
  2. IBUPROFEN [Suspect]

REACTIONS (5)
  - ERYTHEMA [None]
  - FEELING HOT [None]
  - RASH PRURITIC [None]
  - SENSATION OF FOREIGN BODY [None]
  - SWELLING [None]
